FAERS Safety Report 5211183-8 (Version None)
Quarter: 2006Q4

REPORT INFORMATION
  Report Type: 
  Country: None (occurrence: None)
  Receive Date: 20061114
  Receipt Date: 20060925
  Transmission Date: 20070319
  Serious: No
  Sender: FDA-Public Use
  Company Number: S06-USA-03875-01

PATIENT
  Age: 75 Year
  Sex: Male

DRUGS (8)
  1. NAMENDA [Suspect]
     Indication: DEMENTIA ALZHEIMER'S TYPE
     Dosage: 10 MG BID PO
     Route: 048
     Dates: start: 20050101
  2. SOY LECITHIN (PHOSPHOLIPIDS) [Concomitant]
  3. VITAMIN B NOS [Concomitant]
  4. ARICEPT [Concomitant]
  5. NORVASC [Concomitant]
  6. HYDROCHLOROTHIAZIDE [Concomitant]
  7. LISINOPRIL [Concomitant]
  8. LABETALOL HCL [Concomitant]

REACTIONS (2)
  - BARRETT'S OESOPHAGUS [None]
  - ERUCTATION [None]
